FAERS Safety Report 24290774 (Version 1)
Quarter: 2024Q3

REPORT INFORMATION
  Report Type: Other
  Country: CA (occurrence: CA)
  Receive Date: 20240906
  Receipt Date: 20240906
  Transmission Date: 20241017
  Serious: Yes (Other)
  Sender: APOTEX
  Company Number: CA-APOTEX-2024AP010170

PATIENT
  Age: 51 Year
  Sex: Male
  Weight: 102 kg

DRUGS (2)
  1. TAMSULOSIN [Suspect]
     Active Substance: TAMSULOSIN
     Indication: Urinary incontinence
     Dosage: 0.4 MILLIGRAM, QD
     Route: 048
  2. DUTASTERIDE [Suspect]
     Active Substance: DUTASTERIDE
     Indication: Urinary incontinence
     Dosage: 0.5 MILLIGRAM, QD
     Route: 048

REACTIONS (5)
  - Eye pain [Recovered/Resolved]
  - Proctalgia [Recovered/Resolved]
  - Urine abnormality [Recovered/Resolved]
  - Testicular pain [Recovered/Resolved]
  - Headache [Recovered/Resolved]
